FAERS Safety Report 5704655-0 (Version None)
Quarter: 2008Q2

REPORT INFORMATION
  Report Type: 
  Country: None (occurrence: None)
  Receive Date: 20080414
  Receipt Date: 20080402
  Transmission Date: 20081010
  Serious: Yes (Hospitalization)
  Sender: FDA-Public Use
  Company Number: DE-SANOFI-SYNTHELABO-A04200800402

PATIENT
  Sex: Female

DRUGS (1)
  1. STILNOX [Suspect]
     Indication: DRUG USE FOR UNKNOWN INDICATION
     Dosage: 200 MG
     Route: 048
     Dates: start: 20080101, end: 20080101

REACTIONS (1)
  - DRUG ABUSE [None]
